FAERS Safety Report 9126764 (Version 5)
Quarter: 2014Q1

REPORT INFORMATION
  Report Type: Report from Study
  Country: JP (occurrence: JP)
  Receive Date: 20130122
  Receipt Date: 20140213
  Transmission Date: 20141002
  Serious: Yes (Life-Threatening, Other)
  Sender: FDA-Public Use
  Company Number: JP-VERTEX PHARMACEUTICALS INC.-2013-000924

PATIENT
  Age: 64 Year
  Sex: Female

DRUGS (8)
  1. VX-950 (TELAPREVIR) [Suspect]
     Indication: CHRONIC HEPATITIS C
     Dosage: 1500 MG, QD
     Route: 048
     Dates: start: 20120723, end: 20121015
  2. REBETOL [Suspect]
     Indication: CHRONIC HEPATITIS C
     Dosage: 400 MG, QD
     Route: 048
     Dates: start: 20120723, end: 20121018
  3. PEGINTRON [Suspect]
     Indication: CHRONIC HEPATITIS C
     Dosage: 1.5 ?G/KG, QW
     Route: 058
     Dates: start: 20120723, end: 20121015
  4. CABASER [Concomitant]
     Dosage: 0.25 MG, WEEKLY
     Route: 048
  5. CABASER [Concomitant]
     Dosage: 0.25 MG, QD
     Route: 048
     Dates: end: 20121018
  6. LONGES [Concomitant]
     Dosage: 10 MG, QD
     Route: 048
     Dates: end: 20121018
  7. VANCOMYCIN [Concomitant]
     Dosage: 1 G, QD
     Route: 042
     Dates: start: 20121020, end: 20121021
  8. CEFAZOLIN [Concomitant]
     Dosage: 6 G, QD
     Route: 042
     Dates: start: 20121022, end: 20121108

REACTIONS (3)
  - Septic shock [Recovered/Resolved with Sequelae]
  - Cellulitis [Recovered/Resolved with Sequelae]
  - Fall [Recovered/Resolved with Sequelae]
